FAERS Safety Report 24637634 (Version 1)
Quarter: 2024Q4

REPORT INFORMATION
  Report Type: Spontaneous
  Country: US (occurrence: US)
  Receive Date: 20241119
  Receipt Date: 20241119
  Transmission Date: 20250114
  Serious: No
  Sender: SEPTODONT
  Company Number: US-SEPTODONT-2024018432

PATIENT
  Age: 55 Year
  Sex: Female

DRUGS (2)
  1. ARTICAINE HYDROCHLORIDE\EPINEPHRINE BITARTRATE [Suspect]
     Active Substance: ARTICAINE HYDROCHLORIDE\EPINEPHRINE BITARTRATE
     Indication: Dental local anaesthesia
     Dosage: 1 CARTRIDGE.
     Route: 065
     Dates: start: 20240302, end: 20240302
  2. Monoject 27Ga Long needle [Concomitant]
     Indication: Dental local anaesthesia
     Dates: start: 20240302, end: 20240302

REACTIONS (3)
  - Paraesthesia [Recovered/Resolved]
  - Blepharospasm [Recovered/Resolved]
  - Lacrimation increased [Recovered/Resolved]

NARRATIVE: CASE EVENT DATE: 20240302
